FAERS Safety Report 8114827-6 (Version None)
Quarter: 2012Q1

REPORT INFORMATION
  Report Type: 
  Country: None (occurrence: None)
  Receive Date: 20120206
  Receipt Date: 20120125
  Transmission Date: 20120608
  Serious: No
  Sender: FDA-Public Use
  Company Number: PHHY2011JP96515

PATIENT
  Age: 75 Year
  Sex: Male

DRUGS (2)
  1. DIOVAN [Suspect]
     Dosage: 40 MG, DAILY
     Route: 048
     Dates: end: 20111101
  2. DILTIAZEM HCL [Suspect]
     Dosage: UNK
     Route: 048
     Dates: end: 20111101

REACTIONS (1)
  - ORAL INFECTION [None]
